FAERS Safety Report 12310718 (Version 1)
Quarter: 2016Q2

REPORT INFORMATION
  Report Type: Spontaneous
  Country: US (occurrence: None)
  Receive Date: 20160426
  Receipt Date: 20160426
  Transmission Date: 20160815
  Serious: No
  Sender: FDA-Public Use
  Company Number: None

PATIENT
  Age: 70 Year
  Sex: Male

DRUGS (1)
  1. GLEEVEC [Suspect]
     Active Substance: IMATINIB MESYLATE

REACTIONS (9)
  - Pruritus [None]
  - Conjunctivitis [None]
  - Eye swelling [None]
  - Eye pain [None]
  - Ocular hyperaemia [None]
  - Rhinorrhoea [None]
  - Fatigue [None]
  - Burning sensation [None]
  - Eyelid oedema [None]

NARRATIVE: CASE EVENT DATE: 20160425
